FAERS Safety Report 7820343-9 (Version None)
Quarter: 2011Q4

REPORT INFORMATION
  Report Type: 
  Country: None (occurrence: None)
  Receive Date: 20111018
  Receipt Date: 20111004
  Transmission Date: 20120403
  Serious: Yes (Hospitalization, Other)
  Sender: FDA-Public Use
  Company Number: US-BAYER-2011-021236

PATIENT
  Age: 28 Year
  Sex: Female
  Weight: 84.807 kg

DRUGS (7)
  1. CALCIUM CARBONATE [Concomitant]
     Dosage: 750 MG, QD
  2. FISH OIL [Concomitant]
     Dosage: 1200 MG, QD
     Route: 048
  3. ACIDOPHILUS [Concomitant]
     Dosage: 50000000 U, BID
     Route: 048
  4. YAZ [Suspect]
     Indication: CONTRACEPTION
     Dosage: UNK
     Route: 048
     Dates: start: 20080916, end: 20090101
  5. B-COMPLEX [VITAMIN B NOS] [Concomitant]
  6. MULTI-VITAMIN [Concomitant]
  7. VITAMIN D [Concomitant]
     Dosage: 1000 U, QD
     Route: 048

REACTIONS (7)
  - PAIN [None]
  - CHOLELITHIASIS [None]
  - PANCREATITIS [None]
  - CHOLECYSTITIS [None]
  - GALLBLADDER INJURY [None]
  - INJURY [None]
  - ABDOMINAL PAIN UPPER [None]
